FAERS Safety Report 7986417-7 (Version None)
Quarter: 2011Q4

REPORT INFORMATION
  Report Type: 
  Country: None (occurrence: None)
  Receive Date: 20111216
  Receipt Date: 20111205
  Transmission Date: 20120403
  Serious: Yes (Other)
  Sender: FDA-Public Use
  Company Number: DE-ACTELION-A-CH2010-39152

PATIENT
  Sex: Female
  Weight: 35 kg

DRUGS (7)
  1. LEVETIRACETAM [Concomitant]
  2. ZAVESCA [Suspect]
     Dosage: 200 MG, BID
     Route: 048
  3. CLOMIPRAMINE HCL [Concomitant]
  4. ZAVESCA [Suspect]
     Indication: NIEMANN-PICK DISEASE
     Dosage: 200 MG, TID
     Route: 048
     Dates: start: 20080901, end: 20100701
  5. ETHOSUXIMIDE [Concomitant]
  6. ZAVESCA [Suspect]
     Dosage: 100 MG, TID
     Route: 048
     Dates: start: 20100701
  7. ZAVESCA [Suspect]
     Dosage: UNK
     Route: 048

REACTIONS (3)
  - GROWTH RETARDATION [None]
  - WEIGHT DECREASED [None]
  - DIARRHOEA [None]
